FAERS Safety Report 23087285 (Version 1)
Quarter: 2023Q4

REPORT INFORMATION
  Report Type: Spontaneous
  Country: JP (occurrence: JP)
  Receive Date: 20231020
  Receipt Date: 20231020
  Transmission Date: 20240109
  Serious: Yes (Other)
  Sender: FDA-Public Use
  Company Number: JP-UNITED THERAPEUTICS-UNT-2023-029648

PATIENT
  Age: 11 Year
  Sex: Female

DRUGS (2)
  1. UNITUXIN [Suspect]
     Active Substance: DINUTUXIMAB
     Indication: Neuroblastoma
     Dosage: UNK, CYCLICAL (CYCLE 1)
     Route: 041
  2. UNITUXIN [Suspect]
     Active Substance: DINUTUXIMAB
     Dosage: UNK, CYCLICAL (CYCLE 2)
     Route: 041

REACTIONS (5)
  - Neuroblastoma [Unknown]
  - Pyrexia [Unknown]
  - Pain [Unknown]
  - Pyrexia [Unknown]
  - Pain [Unknown]
